FAERS Safety Report 6408561-8 (Version None)
Quarter: 2009Q4

REPORT INFORMATION
  Report Type: 
  Country: None (occurrence: None)
  Receive Date: 20091021
  Receipt Date: 20091013
  Transmission Date: 20100525
  Serious: Yes (Other)
  Sender: FDA-Public Use
  Company Number: PL-BAXTER-2009BH015811

PATIENT
  Age: 2 Year
  Sex: Male
  Weight: 16 kg

DRUGS (2)
  1. GAMMAGARD LIQUID [Suspect]
     Indication: SALMONELLA BACTERAEMIA
     Route: 042
     Dates: start: 20090928, end: 20090928
  2. GAMMAGARD LIQUID [Suspect]
     Indication: OFF LABEL USE
     Route: 042
     Dates: start: 20090928, end: 20090928

REACTIONS (4)
  - ANXIETY [None]
  - CHILLS [None]
  - CYANOSIS [None]
  - PYREXIA [None]
